FAERS Safety Report 6197236-9 (Version None)
Quarter: 2009Q2

REPORT INFORMATION
  Report Type: 
  Country: None (occurrence: None)
  Receive Date: 20090521
  Receipt Date: 20070515
  Transmission Date: 20091009
  Serious: Yes (Hospitalization, Other)
  Sender: FDA-Public Use
  Company Number: US-ASTRAZENECA-2006UW22687

PATIENT
  Age: 20428 Day
  Sex: Female
  Weight: 96.6 kg

DRUGS (31)
  1. SEROQUEL [Suspect]
     Indication: BIPOLAR DISORDER
     Dosage: 200 MG - 750 MG
     Route: 048
     Dates: start: 20030804
  2. SEROQUEL [Suspect]
     Indication: SCHIZOPHRENIA
     Dosage: 200 MG - 750 MG
     Route: 048
     Dates: start: 20030804
  3. SEROQUEL [Suspect]
     Route: 048
     Dates: start: 20040301, end: 20041201
  4. SEROQUEL [Suspect]
     Route: 048
     Dates: start: 20040301, end: 20041201
  5. SEROQUEL [Suspect]
     Route: 048
     Dates: start: 20050801, end: 20051001
  6. SEROQUEL [Suspect]
     Route: 048
     Dates: start: 20050801, end: 20051001
  7. DEXATRIM [Concomitant]
     Indication: WEIGHT CONTROL
  8. ABILIFY [Concomitant]
     Dosage: 15 - 30 MG
     Route: 048
  9. HALDOL [Concomitant]
  10. NAVANE [Concomitant]
     Dates: start: 20060801
  11. RISPERDAL [Concomitant]
  12. PROZAC [Concomitant]
  13. ZOLOFT [Concomitant]
  14. PROMETHAZINE [Concomitant]
  15. PERCOCET [Concomitant]
     Dosage: 7.5 - 40 MG
  16. ZYRTEC [Concomitant]
  17. NEXIUM [Concomitant]
     Dosage: 20 MG, 40 MG
  18. ARTHROTEC [Concomitant]
  19. LOTENSIN [Concomitant]
  20. FUROSEMIDE [Concomitant]
  21. AMBIEN [Concomitant]
  22. THIOTHIXENE [Concomitant]
  23. COMBIVENT [Concomitant]
  24. METFORMIN HCL [Concomitant]
     Route: 048
  25. VISTARIL [Concomitant]
  26. GLUCOTROL [Concomitant]
     Dosage: 5 - 10 MG
  27. CARDIZEM [Concomitant]
     Dosage: 180 - 240 MG
  28. MAXALT [Concomitant]
  29. IMIPRAMINE [Concomitant]
     Dates: end: 20080803
  30. WELLBUTRIN [Concomitant]
     Dosage: 25 - 300 MG
     Dates: end: 20080803
  31. LIBRIUM [Concomitant]
     Dates: end: 20080803

REACTIONS (17)
  - ANXIETY [None]
  - ARTERIOSCLEROSIS CORONARY ARTERY [None]
  - ARTHRALGIA [None]
  - BREAST TENDERNESS [None]
  - CELLULITIS [None]
  - DIABETES MELLITUS [None]
  - DYSTHYMIC DISORDER [None]
  - GASTROENTERITIS [None]
  - HAEMORRHOIDS [None]
  - MUSCULOSKELETAL PAIN [None]
  - NASOPHARYNGITIS [None]
  - PAIN IN EXTREMITY [None]
  - REFLUX OESOPHAGITIS [None]
  - SCHIZOAFFECTIVE DISORDER [None]
  - UPPER RESPIRATORY TRACT INFECTION [None]
  - URINARY TRACT INFECTION [None]
  - WOUND [None]
